FAERS Safety Report 9623609 (Version 1)
Quarter: 2013Q4

REPORT INFORMATION
  Report Type: Spontaneous
  Country: AU (occurrence: None)
  Receive Date: 20131010
  Receipt Date: 20131010
  Transmission Date: 20140711
  Serious: Yes (Hospitalization)
  Sender: FDA-Public Use
  Company Number: IPC201309-000385

PATIENT
  Sex: 0

DRUGS (1)
  1. PROPRANOLOL HYDROCHLORIDE [Suspect]
     Indication: HAEMANGIOMA

REACTIONS (4)
  - Hypotonia [None]
  - Apnoea [None]
  - Heart rate decreased [None]
  - Haemangioma [None]
